FAERS Safety Report 25166007 (Version 1)
Quarter: 2025Q2

REPORT INFORMATION
  Report Type: Report from Study
  Country: US (occurrence: US)
  Receive Date: 20250407
  Receipt Date: 20250407
  Transmission Date: 20250716
  Serious: Yes (Hospitalization)
  Sender: ALEXION PHARMACEUTICALS
  Company Number: US-AstraZeneca-CH-00842080A

PATIENT

DRUGS (1)
  1. ACALABRUTINIB [Suspect]
     Active Substance: ACALABRUTINIB
     Indication: Mantle cell lymphoma
     Dosage: 100 MILLIGRAM, BID

REACTIONS (5)
  - Malignant neoplasm progression [Unknown]
  - Blood pressure fluctuation [Unknown]
  - Asthenia [Unknown]
  - Emotional disorder [Unknown]
  - Decreased activity [Unknown]
